FAERS Safety Report 5541819-3 (Version None)
Quarter: 2007Q4

REPORT INFORMATION
  Report Type: 
  Country: None (occurrence: None)
  Receive Date: 20071210
  Receipt Date: 20071204
  Transmission Date: 20080405
  Serious: Yes (Other)
  Sender: FDA-Public Use
  Company Number: US-JNJFOC-20071201735

PATIENT
  Age: 63 Year

DRUGS (6)
  1. RISPERDAL [Suspect]
     Route: 048
  2. RISPERDAL [Suspect]
     Indication: MAJOR DEPRESSION
     Route: 048
  3. EFFEXOR [Concomitant]
     Indication: MAJOR DEPRESSION
     Route: 048
  4. DOXYCYCLINE [Concomitant]
     Route: 048
  5. NORVASC [Concomitant]
     Indication: HYPERTENSION
     Route: 048
  6. JANUVIA [Concomitant]
     Indication: DIABETES MELLITUS
     Route: 048

REACTIONS (4)
  - DRUG LEVEL INCREASED [None]
  - GANGLIONEUROMA [None]
  - NOREPINEPHRINE INCREASED [None]
  - TYPE 2 DIABETES MELLITUS [None]
